FAERS Safety Report 9528598 (Version 1)
Quarter: 2013Q1

REPORT INFORMATION
  Report Type: Spontaneous
  Country: US (occurrence: None)
  Receive Date: 20130322
  Receipt Date: 20130322
  Transmission Date: 20140127
  Serious: Yes (Other)
  Sender: FDA-Public Use
  Company Number: 412-12

PATIENT
  Sex: Male

DRUGS (7)
  1. DERMOTIC [Suspect]
     Indication: EAR DISORDER
     Route: 061
  2. DERMOTIC [Suspect]
     Indication: PRURITUS
     Route: 061
  3. METFORMIN [Concomitant]
  4. LIPITOR [Concomitant]
  5. OXYTROL [Concomitant]
  6. SIMILASAN [Concomitant]
  7. CIPRODEX [Concomitant]

REACTIONS (1)
  - Rash [None]
